FAERS Safety Report 8761161 (Version 1)
Quarter: 2012Q4

REPORT INFORMATION
  Report Type: Report from Study
  Country: NL (occurrence: NL)
  Receive Date: 20120830
  Receipt Date: 20120830
  Transmission Date: 20130627
  Serious: Yes (Death)
  Sender: FDA-Public Use
  Company Number: NL-INCYTE CORPORATION-2012IN001586

PATIENT
  Age: 74 Year
  Sex: Male

DRUGS (1)
  1. RUXOLITINIB [Suspect]
     Dosage: 5 mg, QD
     Route: 065

REACTIONS (1)
  - Cardiac failure [Fatal]
